FAERS Safety Report 8325082-6 (Version None)
Quarter: 2012Q2

REPORT INFORMATION
  Report Type: 
  Country: None (occurrence: None)
  Receive Date: 20120501
  Receipt Date: 20100323
  Transmission Date: 20120825
  Serious: No
  Sender: FDA-Public Use
  Company Number: US-TEVA-2010001665

PATIENT
  Age: 52 Year
  Sex: Female

DRUGS (4)
  1. NUVIGIL [Suspect]
     Dosage: 250 MILLIGRAM;
     Route: 048
     Dates: start: 20090915, end: 20091101
  2. NUVIGIL [Suspect]
     Indication: NARCOLEPSY
     Dosage: 150 MILLIGRAM;
     Route: 048
     Dates: start: 20090611, end: 20090829
  3. NUVIGIL [Suspect]
     Dosage: 225 MILLIGRAM;
     Route: 048
     Dates: start: 20090830, end: 20090914
  4. FLONASE [Concomitant]

REACTIONS (1)
  - DRUG INEFFECTIVE [None]
